FAERS Safety Report 6201249-8 (Version None)
Quarter: 2009Q2

REPORT INFORMATION
  Report Type: 
  Country: None (occurrence: None)
  Receive Date: 20090526
  Receipt Date: 20090522
  Transmission Date: 20091009
  Serious: Yes (Life-Threatening)
  Sender: FDA-Public Use
  Company Number: AU-ASTRAZENECA-2009AP03264

PATIENT
  Sex: Female

DRUGS (1)
  1. NAROPIN [Suspect]

REACTIONS (1)
  - ADVERSE DRUG REACTION [None]
